FAERS Safety Report 14131492 (Version 4)
Quarter: 2019Q2

REPORT INFORMATION
  Report Type: Spontaneous
  Country: US (occurrence: US)
  Receive Date: 20171026
  Receipt Date: 20190517
  Transmission Date: 20190711
  Serious: No
  Sender: FDA-Public Use
  Company Number: US-ASTRAZENECA-2017SF08734

PATIENT
  Sex: Male

DRUGS (1)
  1. BYDUREON [Suspect]
     Active Substance: EXENATIDE
     Route: 058

REACTIONS (6)
  - Diabetes mellitus inadequate control [Unknown]
  - Needle issue [Unknown]
  - Injection site pain [Unknown]
  - Device malfunction [Unknown]
  - Device leakage [Unknown]
  - Product dose omission [Unknown]
